FAERS Safety Report 16270523 (Version 2)
Quarter: 2019Q2

REPORT INFORMATION
  Report Type: Report from Study
  Country: US (occurrence: US)
  Receive Date: 20190503
  Receipt Date: 20190621
  Transmission Date: 20190711
  Serious: Yes (Other)
  Sender: FDA-Public Use
  Company Number: US-MALLINCKRODT-T201800619

PATIENT
  Age: 54 Year
  Sex: Male

DRUGS (8)
  1. REPOSITORY CORTICOTROPIN INJECTION [Suspect]
     Active Substance: CORTICOTROPIN
     Indication: NEPHROTIC SYNDROME
     Dosage: 80 UNITS/1 ML,  2 TIMES PER WEEK MONDAY, FRIDAY
     Route: 058
     Dates: end: 2017
  2. REPOSITORY CORTICOTROPIN INJECTION [Suspect]
     Active Substance: CORTICOTROPIN
     Dosage: 80 UNITS/1 ML, TWICE WEEKLY MONDAY, FRIDAY
     Route: 058
     Dates: start: 20180226, end: 2018
  3. REPOSITORY CORTICOTROPIN INJECTION [Suspect]
     Active Substance: CORTICOTROPIN
     Dosage: 80 UNITS/1 ML, TWICE WEEKLY MONDAY, FRIDAY
     Route: 058
  4. REPOSITORY CORTICOTROPIN INJECTION [Suspect]
     Active Substance: CORTICOTROPIN
     Dosage: 80 UNITS/1 ML, TWICE WEEKLY MONDAY, FRIDAY
     Route: 058
     Dates: start: 2018, end: 2018
  5. REPOSITORY CORTICOTROPIN INJECTION [Suspect]
     Active Substance: CORTICOTROPIN
     Dosage: 80 UNITS/1 ML, TWICE WEEKLY MONDAY, FRIDAY
     Route: 058
     Dates: start: 2018
  6. REPOSITORY CORTICOTROPIN INJECTION [Suspect]
     Active Substance: CORTICOTROPIN
     Dosage: 80 UNITS/1 ML, TWICE WEEKLY MONDAY, FRIDAY
     Route: 058
  7. FLU [Concomitant]
     Active Substance: INFLUENZA VIRUS VACCINE
     Indication: PRODUCT USED FOR UNKNOWN INDICATION
     Dosage: UNK
     Route: 065
  8. REPOSITORY CORTICOTROPIN INJECTION [Suspect]
     Active Substance: CORTICOTROPIN
     Indication: PROTEINURIA
     Dosage: 80 UNITS/1 ML,  2 TIMES PER WEEK MONDAY, FRIDAY
     Route: 058
     Dates: start: 20130101, end: 20151211

REACTIONS (15)
  - Malaise [Not Recovered/Not Resolved]
  - Pain [Not Recovered/Not Resolved]
  - Fatigue [Unknown]
  - Loss of consciousness [Unknown]
  - Road traffic accident [Unknown]
  - Eyelid thickening [Unknown]
  - Hyperhidrosis [Unknown]
  - Cerebrovascular accident [Unknown]
  - Somnolence [Unknown]
  - Contusion [Unknown]
  - Peripheral swelling [Recovering/Resolving]
  - White coat hypertension [Unknown]
  - Fall [Not Recovered/Not Resolved]
  - Tooth loss [Unknown]
  - Anxiety [Unknown]

NARRATIVE: CASE EVENT DATE: 2018
